FAERS Safety Report 13958209 (Version 2)
Quarter: 2017Q3

REPORT INFORMATION
  Report Type: Spontaneous
  Country: IN (occurrence: IN)
  Receive Date: 20170912
  Receipt Date: 20170912
  Transmission Date: 20171128
  Serious: Yes (Death)
  Sender: FDA-Public Use
  Company Number: PHHY2017IN132772

PATIENT
  Age: 36 Year
  Sex: Female

DRUGS (6)
  1. ZOLEDRONATE [Suspect]
     Active Substance: ZOLEDRONIC ACID
     Indication: BREAST ANGIOSARCOMA METASTATIC
     Dosage: 4 MG, QMO
     Route: 042
  2. ETOPOSIDE. [Suspect]
     Active Substance: ETOPOSIDE
     Indication: BREAST ANGIOSARCOMA METASTATIC
     Dosage: 50 MG, QD (3 WEEKS ON 3 WEEKS OFF)
     Route: 048
  3. PROPRANOLOL [Suspect]
     Active Substance: PROPRANOLOL HYDROCHLORIDE
     Indication: BREAST ANGIOSARCOMA METASTATIC
     Dosage: 40 MG, BID
     Route: 048
  4. CELECOXIB. [Suspect]
     Active Substance: CELECOXIB
     Indication: BREAST ANGIOSARCOMA METASTATIC
     Dosage: 400 MG, BID
     Route: 048
  5. CYCLOPHOSPHAMIDE. [Suspect]
     Active Substance: CYCLOPHOSPHAMIDE
     Indication: BREAST ANGIOSARCOMA METASTATIC
     Dosage: 100 MG, QD (3 WEEKS ON 3 WEEKS OFF)
     Route: 048
  6. THALIDOMIDE [Suspect]
     Active Substance: THALIDOMIDE
     Indication: BREAST ANGIOSARCOMA METASTATIC
     Dosage: 200 MG, QD
     Route: 048

REACTIONS (3)
  - Condition aggravated [Fatal]
  - Breast angiosarcoma metastatic [Fatal]
  - Malignant neoplasm progression [Fatal]
